FAERS Safety Report 8106045-2 (Version None)
Quarter: 2012Q1

REPORT INFORMATION
  Report Type: 
  Country: None (occurrence: None)
  Receive Date: 20120202
  Receipt Date: 20120127
  Transmission Date: 20120608
  Serious: No
  Sender: FDA-Public Use
  Company Number: US-BIOGENIDEC-2012BI003503

PATIENT
  Sex: Female

DRUGS (5)
  1. MORPHINE [Concomitant]
     Indication: PAIN
  2. MORPHINE [Concomitant]
     Indication: BONE PAIN
  3. PAIN PATCH [Concomitant]
     Indication: BONE PAIN
  4. AVONEX [Suspect]
     Indication: MULTIPLE SCLEROSIS
     Route: 030
     Dates: start: 20000701
  5. PAIN PATCH [Concomitant]
     Indication: PAIN

REACTIONS (3)
  - NERVOUSNESS [None]
  - DRUG WITHDRAWAL SYNDROME [None]
  - ABDOMINAL DISCOMFORT [None]
